FAERS Safety Report 8033509-2 (Version None)
Quarter: 2012Q1

REPORT INFORMATION
  Report Type: 
  Country: None (occurrence: None)
  Receive Date: 20120110
  Receipt Date: 20120105
  Transmission Date: 20120608
  Serious: Yes (Other)
  Sender: FDA-Public Use
  Company Number: GB-ROCHE-1028116

PATIENT
  Sex: Female

DRUGS (3)
  1. SULFASALAZINE [Concomitant]
  2. STEROIDS - UNKNOWN TYPE [Concomitant]
  3. MABTHERA [Suspect]
     Indication: PRODUCT USED FOR UNKNOWN INDICATION
     Dosage: LAST DOSE PRIOR SAE 01-NOV-2010
     Dates: start: 20101018

REACTIONS (1)
  - BASAL CELL CARCINOMA [None]
